FAERS Safety Report 17151601 (Version 2)
Quarter: 2019Q4

REPORT INFORMATION
  Report Type: Spontaneous
  Country: FR (occurrence: FR)
  Receive Date: 20191213
  Receipt Date: 20191223
  Transmission Date: 20200122
  Serious: Yes (Hospitalization, Other)
  Sender: FDA-Public Use
  Company Number: FR-VELOXIS PHARMACEUTICALS-2019VELFR-000719

PATIENT
  Age: 54 Year
  Sex: Female

DRUGS (4)
  1. ANTITHYMOCYTE IMMUNOGLOBULIN [Suspect]
     Active Substance: THYMOCYTE IMMUNE GLOBULIN NOS
     Indication: IMMUNOSUPPRESSANT DRUG THERAPY
     Dosage: UNK
     Route: 042
  2. ENVARSUS XR [Suspect]
     Active Substance: TACROLIMUS
     Indication: IMMUNOSUPPRESSANT DRUG THERAPY
     Dosage: UNK
     Route: 065
  3. METHYLPREDNISOLONE. [Suspect]
     Active Substance: METHYLPREDNISOLONE
     Indication: IMMUNOSUPPRESSANT DRUG THERAPY
     Dosage: UNK
     Route: 065
  4. PREDNISOLONE. [Suspect]
     Active Substance: PREDNISOLONE
     Indication: IMMUNOSUPPRESSANT DRUG THERAPY
     Dosage: UNK
     Route: 065

REACTIONS (7)
  - Liver transplant rejection [Recovered/Resolved]
  - Skin lesion [Recovered/Resolved]
  - Kaposi^s sarcoma [Recovered/Resolved]
  - Oesophageal mass [Recovered/Resolved]
  - Immunosuppression [Recovered/Resolved]
  - Nodule [Recovered/Resolved]
  - Herpes virus infection [Recovered/Resolved]
